FAERS Safety Report 18498866 (Version 1)
Quarter: 2020Q4

REPORT INFORMATION
  Report Type: Spontaneous
  Country: US (occurrence: US)
  Receive Date: 20201112
  Receipt Date: 20201112
  Transmission Date: 20210114
  Serious: Yes (Other)
  Sender: FDA-Public Use
  Company Number: US-TAKEDA-2020TUS049163

PATIENT
  Age: 69 Year
  Sex: Male

DRUGS (1)
  1. RECOMBINATE [Suspect]
     Active Substance: ANTIHEMOPHILIC FACTOR, HUMAN RECOMBINANT
     Indication: PRODUCT USED FOR UNKNOWN INDICATION
     Dosage: 3700 INTERNATIONAL UNIT
     Route: 042

REACTIONS (2)
  - Ligament sprain [Unknown]
  - Haemorrhage [Unknown]

NARRATIVE: CASE EVENT DATE: 20201105
